FAERS Safety Report 6065750-2 (Version None)
Quarter: 2009Q1

REPORT INFORMATION
  Report Type: 
  Country: None (occurrence: None)
  Receive Date: 20090202
  Receipt Date: 20090121
  Transmission Date: 20090719
  Serious: Yes (Other)
  Sender: FDA-Public Use
  Company Number: FABR-1000615

PATIENT
  Age: 53 Year
  Sex: Female

DRUGS (1)
  1. FABRAZYME [Suspect]
     Indication: FABRY'S DISEASE

REACTIONS (1)
  - ARRHYTHMIA [None]
